FAERS Safety Report 9434602 (Version 2)
Quarter: 2013Q4

REPORT INFORMATION
  Report Type: Spontaneous
  Country: US (occurrence: US)
  Receive Date: 20130801
  Receipt Date: 20131002
  Transmission Date: 20140711
  Serious: Yes (Other)
  Sender: FDA-Public Use
  Company Number: US-PFIZER INC-2013223177

PATIENT
  Age: 77 Year
  Sex: Male

DRUGS (17)
  1. LYRICA [Suspect]
     Indication: DIABETIC NEUROPATHY
     Dosage: 50 MG, 1X/DAY
     Dates: start: 2011, end: 201304
  2. PACERONE [Concomitant]
     Dosage: 100 MG, DAILY
     Route: 048
  3. ASPIRIN [Concomitant]
     Dosage: 81 MG, DAILY
     Route: 048
  4. LIPITOR [Concomitant]
     Dosage: 20 MG, DAILY
     Route: 048
  5. COREG [Concomitant]
     Dosage: 12.5 MG EVERY MORNING, 25MG EVERY EVENING
     Route: 048
  6. COENZYME Q10 [Concomitant]
     Dosage: 300 MG, UNK
     Route: 048
  7. CYMBALTA [Concomitant]
     Dosage: 30 MG, DAILY
     Route: 048
  8. INSPRA [Concomitant]
     Dosage: 25 MG, DAILY
     Route: 048
  9. LASIX [Concomitant]
     Dosage: 60 MG, DAILY
     Route: 048
  10. GLUCAGON [Concomitant]
     Dosage: 1 MG, UNK
  11. VICODIN [Concomitant]
     Indication: PAIN
     Dosage: 5-500 MG 4 TIMES DAILY AS NEEDED
  12. LANTUS [Concomitant]
     Dosage: 35 IU, 1X/DAY
     Route: 058
  13. APIDRA [Concomitant]
     Dosage: 50-70 UNITS DAILY
  14. MAG-OX [Concomitant]
     Dosage: 500 MG, DAILY
     Route: 048
  15. DIOVAN [Concomitant]
     Dosage: 80 MG, 2X/DAY
     Route: 048
  16. LDL CHOLESTEROL (BIOMARKER) [Concomitant]
     Dosage: YEARLY
     Dates: end: 20110520
  17. INFLUENZA VACCINE [Concomitant]
     Dosage: UNK
     Dates: end: 20130801

REACTIONS (6)
  - Pain in extremity [Not Recovered/Not Resolved]
  - Cellulitis [Unknown]
  - Impaired healing [Unknown]
  - Paraesthesia [Unknown]
  - Blister [Unknown]
  - Skin ulcer [Unknown]
